FAERS Safety Report 9636745 (Version 1)
Quarter: 2013Q4

REPORT INFORMATION
  Report Type: Spontaneous
  Country: US (occurrence: US)
  Receive Date: 20131022
  Receipt Date: 20131022
  Transmission Date: 20140711
  Serious: Yes (Hospitalization, Other)
  Sender: FDA-Public Use
  Company Number: US-JNJFOC-20131006515

PATIENT
  Sex: 0

DRUGS (1)
  1. ASPIRIN [Suspect]
     Indication: PRODUCT USED FOR UNKNOWN INDICATION
     Route: 065

REACTIONS (6)
  - Adverse drug reaction [Unknown]
  - Hyperventilation [Unknown]
  - Acidosis [Unknown]
  - Overdose [Unknown]
  - Vomiting [Unknown]
  - Tinnitus [Unknown]
